FAERS Safety Report 17825903 (Version 2)
Quarter: 2020Q2

REPORT INFORMATION
  Report Type: Report from Study
  Country: GB (occurrence: GB)
  Receive Date: 20200526
  Receipt Date: 20200630
  Transmission Date: 20200714
  Serious: Yes (Other)
  Sender: FDA-Public Use
  Company Number: GB-SAMSUNG BIOEPIS-SB-2020-17231

PATIENT
  Sex: Female

DRUGS (2)
  1. IMRALDI [Suspect]
     Active Substance: ADALIMUMAB
     Route: 058
     Dates: start: 20200226
  2. IMRALDI [Suspect]
     Active Substance: ADALIMUMAB
     Indication: POUCHITIS
     Route: 058
     Dates: start: 20190809

REACTIONS (2)
  - Product use in unapproved indication [Unknown]
  - Immunosuppression [Unknown]
